FAERS Safety Report 12830323 (Version 3)
Quarter: 2018Q1

REPORT INFORMATION
  Report Type: Spontaneous
  Country: US (occurrence: US)
  Receive Date: 20161007
  Receipt Date: 20180110
  Transmission Date: 20180508
  Serious: Yes (Hospitalization)
  Sender: FDA-Public Use
  Company Number: US-SA-2016SA168115

PATIENT
  Age: 57 Year
  Sex: Female

DRUGS (1)
  1. AUBAGIO [Suspect]
     Active Substance: TERIFLUNOMIDE
     Indication: MULTIPLE SCLEROSIS
     Route: 048
     Dates: start: 20160324

REACTIONS (10)
  - Gallbladder disorder [Unknown]
  - Fall [Unknown]
  - Coordination abnormal [Unknown]
  - Muscular weakness [Unknown]
  - Gait disturbance [Unknown]
  - Chest pain [Unknown]
  - Blood cholesterol increased [Unknown]
  - Joint swelling [Unknown]
  - Diarrhoea [Unknown]
  - Hypertension [Unknown]

NARRATIVE: CASE EVENT DATE: 2016
